FAERS Safety Report 8276164-9 (Version None)
Quarter: 2012Q2

REPORT INFORMATION
  Report Type: 
  Country: None (occurrence: None)
  Receive Date: 20120405
  Receipt Date: 20120327
  Transmission Date: 20120825
  Serious: Yes (Death)
  Sender: FDA-Public Use
  Company Number: 2012SP017491

PATIENT

DRUGS (2)
  1. BEVACIZUMAB [Suspect]
     Indication: GLIOBLASTOMA
     Dosage: 100 MG/KG, IV
     Route: 042
  2. TEMOZOLOMIDE [Suspect]
     Indication: GLIOBLASTOMA
     Dosage: 50 MG/M2, QD

REACTIONS (2)
  - CANDIDA PNEUMONIA [None]
  - PNEUMONIA FUNGAL [None]
